FAERS Safety Report 23082633 (Version 1)
Quarter: 2023Q4

REPORT INFORMATION
  Report Type: Spontaneous
  Country: US (occurrence: US)
  Receive Date: 20231019
  Receipt Date: 20231019
  Transmission Date: 20240110
  Serious: No
  Sender: FDA-Public Use
  Company Number: US-BRISTOL-MYERS SQUIBB COMPANY-2023-148404

PATIENT
  Age: 72 Year
  Sex: Male
  Weight: 63.5 kg

DRUGS (3)
  1. KENALOG [Suspect]
     Active Substance: TRIAMCINOLONE ACETONIDE
     Indication: Periarthritis
     Dosage: DOSE : 1;     FREQ : ONCE
     Route: 014
     Dates: start: 20231009
  2. PLAVIX [Concomitant]
     Active Substance: CLOPIDOGREL BISULFATE
     Indication: Myocardial infarction
  3. HUMIRA [Concomitant]
     Active Substance: ADALIMUMAB
     Indication: Myocardial infarction

REACTIONS (5)
  - Insomnia [Recovering/Resolving]
  - Agitation [Unknown]
  - Dyspnoea [Unknown]
  - Anxiety [Unknown]
  - Off label use [Unknown]

NARRATIVE: CASE EVENT DATE: 20231001
